FAERS Safety Report 17766030 (Version 2)
Quarter: 2020Q2

REPORT INFORMATION
  Report Type: Spontaneous
  Country: DK (occurrence: DK)
  Receive Date: 20200511
  Receipt Date: 20200526
  Transmission Date: 20200714
  Serious: Yes (Life-Threatening, Hospitalization, Other)
  Sender: FDA-Public Use
  Company Number: DK-PFIZER INC-2020183707

PATIENT
  Age: 67 Year
  Sex: Female
  Weight: 84.1 kg

DRUGS (2)
  1. NIMORAZOL [Concomitant]
     Dosage: UNK
     Dates: start: 20190205
  2. CARBOPLATIN. [Suspect]
     Active Substance: CARBOPLATIN
     Indication: SQUAMOUS CELL CARCINOMA
     Dosage: UNK, WEEKLY
     Route: 042
     Dates: start: 20190205, end: 20190227

REACTIONS (3)
  - Deep vein thrombosis [Recovering/Resolving]
  - Lacunar infarction [Recovering/Resolving]
  - Necrosis ischaemic [Recovering/Resolving]

NARRATIVE: CASE EVENT DATE: 20190226
